FAERS Safety Report 16514298 (Version 1)
Quarter: 2019Q3

REPORT INFORMATION
  Report Type: Other
  Country: DE (occurrence: DE)
  Receive Date: 20190702
  Receipt Date: 20190702
  Transmission Date: 20191004
  Serious: Yes (Other)
  Sender: FDA-Public Use
  Company Number: DE-LUPIN PHARMACEUTICALS INC.-2019-03855

PATIENT
  Age: 47 Year
  Sex: Female
  Weight: 65 kg

DRUGS (13)
  1. ASPIRIN. [Concomitant]
     Active Substance: ASPIRIN
     Indication: PROPHYLAXIS
     Dosage: 100 MICROGRAM, QD
     Route: 048
  2. PREDNISOLON [PREDNISOLONE] [Concomitant]
     Active Substance: PREDNISOLONE
     Indication: INFERTILITY FEMALE
     Dosage: 15 MILLIGRAM, QD, (BIS 5)
     Route: 048
     Dates: start: 20180324, end: 20180424
  3. CLEXANE [Concomitant]
     Active Substance: ENOXAPARIN SODIUM
     Indication: PROPHYLAXIS OF ABORTION
     Dosage: UNK
     Route: 058
     Dates: start: 20180328, end: 20180421
  4. COLECALCIFEROL [Concomitant]
     Active Substance: CHOLECALCIFEROL
     Indication: VITAMIN D DEFICIENCY
     Dosage: UNK, 20000 [I.E./WK ]
     Route: 048
  5. QUETIAPINE FUMARATE EXTENDED-RELEASE [Suspect]
     Active Substance: QUETIAPINE FUMARATE
     Indication: DEPRESSION
     Dosage: 225 MG PER DAY (BIS 150 MG/D, 50-75 UNRETARD)
     Route: 048
     Dates: end: 20181211
  6. PROLUTON [HYDROXYPROGESTERONE CAPROATE] [Concomitant]
     Indication: PROPHYLAXIS OF ABORTION
     Dosage: 500 MILLIGRAM, QD, EVERY 3 DAYS
     Route: 030
     Dates: start: 20180328, end: 20180419
  7. QUETIAPINE FUMARATE. [Suspect]
     Active Substance: QUETIAPINE FUMARATE
     Indication: DEPRESSION
     Dosage: 225 MG PER DAY (BIS 150 MG/D, 50-75 UNRETARD)
     Route: 048
     Dates: end: 20181211
  8. ACTRAPID [Concomitant]
     Active Substance: INSULIN HUMAN
     Indication: GESTATIONAL DIABETES
     Dosage: UNK
     Route: 058
  9. PROLUTEX [Concomitant]
     Active Substance: PROGESTERONE
     Indication: PROPHYLAXIS OF ABORTION
     Dosage: 200 MILLIGRAM
     Route: 058
     Dates: start: 20180413, end: 20180419
  10. XYLOMETAZOLINE [Concomitant]
     Active Substance: XYLOMETAZOLINE
     Indication: NASAL CONGESTION
     Dosage: UNK
     Route: 045
  11. VAXIGRIP TETRA [Concomitant]
     Indication: IMMUNISATION
     Dosage: UNK
     Route: 030
  12. FAMENITA [Concomitant]
     Active Substance: PROGESTERONE
     Indication: PROPHYLAXIS OF ABORTION
     Dosage: 600 MILLIGRAM, QD, (3X200)
     Route: 067
  13. L-THYROXIN [LEVOTHYROXINE SODIUM] [Concomitant]
     Indication: HYPOTHYROIDISM
     Dosage: 100 MICROGRAM, QD, (BIS 50 ???G/D)
     Route: 048
     Dates: start: 20180310, end: 20181023

REACTIONS (3)
  - Exposure during pregnancy [Unknown]
  - Gestational diabetes [Recovered/Resolved]
  - Polyhydramnios [Recovered/Resolved]
